FAERS Safety Report 8524857-8 (Version None)
Quarter: 2012Q3

REPORT INFORMATION
  Report Type: 
  Country: None (occurrence: None)
  Receive Date: 20120720
  Receipt Date: 20120718
  Transmission Date: 20120928
  Serious: Yes (Life-Threatening, Hospitalization)
  Sender: FDA-Public Use
  Company Number: PHHY2012GB061576

PATIENT
  Age: 75 Year
  Sex: Male

DRUGS (6)
  1. WARFARIN SODIUM [Suspect]
  2. FOLIC ACID [Concomitant]
  3. SPIRONOLACTONE [Concomitant]
  4. BENYLIN CHESTY COUGH [Interacting]
     Indication: COUGH
     Dosage: 5 MG, UNK
     Route: 048
  5. ATORVASTATIN [Concomitant]
  6. COLCHICINE [Concomitant]

REACTIONS (3)
  - DRUG INTERACTION [None]
  - INTERNATIONAL NORMALISED RATIO INCREASED [None]
  - HAEMORRHAGE [None]
